FAERS Safety Report 26063722 (Version 2)
Quarter: 2025Q4

REPORT INFORMATION
  Report Type: Spontaneous
  Country: EU (occurrence: EU)
  Receive Date: 20251119
  Receipt Date: 20251205
  Transmission Date: 20260118
  Serious: Yes (Other)
  Sender: ALEXION PHARMACEUTICALS
  Company Number: EU-AstraZeneca-CH-00992989A

PATIENT

DRUGS (1)
  1. IMJUDO [Suspect]
     Active Substance: TREMELIMUMAB\TREMELIMUMAB-ACTL
     Dosage: UNK
     Route: 065

REACTIONS (2)
  - Hepatocellular carcinoma [Unknown]
  - Off label use [Unknown]
